FAERS Safety Report 14687662 (Version 1)
Quarter: 2018Q1

REPORT INFORMATION
  Report Type: Report from Study
  Country: FR (occurrence: FR)
  Receive Date: 20180328
  Receipt Date: 20180328
  Transmission Date: 20180509
  Serious: Yes (Hospitalization)
  Sender: FDA-Public Use
  Company Number: FR-ROCHE-2096864

PATIENT
  Age: 3 Year
  Sex: Male

DRUGS (3)
  1. ERLOTINIB [Suspect]
     Active Substance: ERLOTINIB
     Indication: BRAIN STEM GLIOMA
     Dosage: MOST RECENT DOSE PRIOR TO SAE: 15/MAR/2018, CUMULATIVE DOSE BEFORE EVENT ONSET OF 8950 MG
     Route: 048
     Dates: start: 20171121, end: 20180316
  2. SOLUPRED (FRANCE) [Concomitant]
     Active Substance: PREDNISOLONE
     Indication: TUMOUR PAIN
     Route: 048
     Dates: start: 20180302
  3. BEVACIZUMAB. [Suspect]
     Active Substance: BEVACIZUMAB
     Indication: BRAIN STEM GLIOMA
     Dosage: MOST RECENT DOSE PRIOR TO SAE: 01/MAR/2018, CUMULATIVE DOSE BEFORE EVENT ONSET OF 640 MG
     Route: 042
     Dates: start: 20180118

REACTIONS (3)
  - Skin toxicity [Not Recovered/Not Resolved]
  - Streptococcal infection [Not Recovered/Not Resolved]
  - Staphylococcal infection [Not Recovered/Not Resolved]

NARRATIVE: CASE EVENT DATE: 20180316
